FAERS Safety Report 4844884-1 (Version None)
Quarter: 2005Q4

REPORT INFORMATION
  Report Type: 
  Country: None (occurrence: None)
  Receive Date: 20051205
  Receipt Date: 20051123
  Transmission Date: 20060501
  Serious: Yes (Hospitalization)
  Sender: FDA-Public Use
  Company Number: SE-SANOFI-SYNTHELABO-A01200508150

PATIENT
  Age: 47 Year
  Sex: Male

DRUGS (2)
  1. STILNOCT [Suspect]
     Indication: SUICIDE ATTEMPT
     Route: 048
     Dates: start: 20050220, end: 20050220
  2. ALCOHOL [Concomitant]
     Dosage: UNK
     Route: 065
     Dates: start: 20050220, end: 20050220

REACTIONS (4)
  - CIRCULATORY COLLAPSE [None]
  - DEPRESSED LEVEL OF CONSCIOUSNESS [None]
  - INTENTIONAL OVERDOSE [None]
  - LOSS OF CONSCIOUSNESS [None]
